FAERS Safety Report 5642736-0 (Version None)
Quarter: 2008Q1

REPORT INFORMATION
  Report Type: 
  Country: None (occurrence: None)
  Receive Date: 20080228
  Receipt Date: 20080218
  Transmission Date: 20080703
  Serious: Yes (Other)
  Sender: FDA-Public Use
  Company Number: US-AMGEN-QUU266002

PATIENT
  Sex: Female

DRUGS (1)
  1. ENBREL [Suspect]
     Indication: PSORIATIC ARTHROPATHY
     Route: 058
     Dates: start: 20060506

REACTIONS (11)
  - ALOPECIA [None]
  - AMNESIA [None]
  - COUGH [None]
  - DIARRHOEA [None]
  - DRY SKIN [None]
  - IRRITABILITY [None]
  - MALAISE [None]
  - NAIL GROWTH ABNORMAL [None]
  - RESPIRATORY TRACT CONGESTION [None]
  - THYROID NEOPLASM [None]
  - WEIGHT INCREASED [None]
